FAERS Safety Report 14868274 (Version 2)
Quarter: 2018Q3

REPORT INFORMATION
  Report Type: Report from Study
  Country: US (occurrence: US)
  Receive Date: 20180509
  Receipt Date: 20180806
  Transmission Date: 20181010
  Serious: Yes (Other)
  Sender: FDA-Public Use
  Company Number: US-BRISTOL-MYERS SQUIBB COMPANY-BMS-2018-041174

PATIENT
  Sex: Female
  Weight: 81.64 kg

DRUGS (4)
  1. TRIAZOLAM. [Concomitant]
     Active Substance: TRIAZOLAM
     Indication: SLEEP DISORDER
     Route: 065
  2. ALPRAZOLAM. [Concomitant]
     Active Substance: ALPRAZOLAM
     Indication: ANXIETY
     Route: 065
  3. NIVOLUMAB [Suspect]
     Active Substance: NIVOLUMAB
     Indication: NON-SMALL CELL LUNG CANCER
     Dosage: UNK
     Route: 065
     Dates: start: 201708, end: 201712
  4. MULTIVITAMIN                       /00097801/ [Concomitant]
     Active Substance: VITAMINS
     Indication: PRODUCT USED FOR UNKNOWN INDICATION
     Route: 065

REACTIONS (17)
  - Metastases to central nervous system [Unknown]
  - Choking [Unknown]
  - Pruritus [Unknown]
  - Adrenal disorder [Unknown]
  - Swelling [Unknown]
  - Bone pain [Unknown]
  - Lower respiratory tract inflammation [Unknown]
  - Alopecia [Not Recovered/Not Resolved]
  - Cough [Recovered/Resolved]
  - Brain oedema [Unknown]
  - Epistaxis [Unknown]
  - Respiratory arrest [Not Recovered/Not Resolved]
  - Cortisol decreased [Unknown]
  - Fatigue [Unknown]
  - Malaise [Unknown]
  - Pulmonary oedema [Recovered/Resolved]
  - Headache [Unknown]
